FAERS Safety Report 21278343 (Version 1)
Quarter: 2022Q3

REPORT INFORMATION
  Report Type: Spontaneous
  Country: US (occurrence: US)
  Receive Date: 20220831
  Receipt Date: 20220831
  Transmission Date: 20221026
  Serious: No
  Sender: FDA-Public Use
  Company Number: US-009507513-2208USA009188

PATIENT
  Sex: Female

DRUGS (2)
  1. DIFICID [Suspect]
     Active Substance: FIDAXOMICIN
     Dosage: 200 MG
     Route: 048
  2. IRON [Suspect]
     Active Substance: IRON

REACTIONS (5)
  - Adverse drug reaction [Unknown]
  - Drug interaction [Unknown]
  - Discomfort [Unknown]
  - Product coating issue [Unknown]
  - Product container issue [Unknown]
